FAERS Safety Report 10544242 (Version 1)
Quarter: 2014Q4

REPORT INFORMATION
  Report Type: Spontaneous
  Country: US (occurrence: None)
  Receive Date: 20141024
  Receipt Date: 20141024
  Transmission Date: 20150529
  Serious: Yes (Hospitalization)
  Sender: FDA-Public Use
  Company Number: None

PATIENT
  Age: 57 Year
  Sex: Male
  Weight: 81 kg

DRUGS (4)
  1. CARBOPLATIN. [Suspect]
     Active Substance: CARBOPLATIN
  2. ELOXATIN [Suspect]
     Active Substance: OXALIPLATIN
  3. TAXOL [Suspect]
     Active Substance: PACLITAXEL
  4. 5-FLUOROURACIL (5-FU) [Suspect]
     Active Substance: FLUOROURACIL

REACTIONS (7)
  - Retching [None]
  - Vomiting [None]
  - Nausea [None]
  - Fatigue [None]
  - Abdominal pain upper [None]
  - Dysphagia [None]
  - Odynophagia [None]

NARRATIVE: CASE EVENT DATE: 20141021
